FAERS Safety Report 6960421-X (Version None)
Quarter: 2010Q3

REPORT INFORMATION
  Report Type: 
  Country: None (occurrence: None)
  Receive Date: 20100823
  Receipt Date: 20100701
  Transmission Date: 20110219
  Serious: No
  Sender: FDA-Public Use
  Company Number: 014990

PATIENT
  Sex: Male
  Weight: 108.8633 kg

DRUGS (5)
  1. CIMZIA [Suspect]
     Indication: CROHN'S DISEASE
     Dosage: (400 MG QOW SUBCUTANEOUS) ; (400 MG 1X/4 WEEKS SUBCUTANEOUS)
     Route: 058
     Dates: start: 20091106, end: 20091230
  2. CIMZIA [Suspect]
     Indication: CROHN'S DISEASE
     Dosage: (400 MG QOW SUBCUTANEOUS) ; (400 MG 1X/4 WEEKS SUBCUTANEOUS)
     Route: 058
     Dates: start: 20091231
  3. AZASAN [Concomitant]
  4. IMODIUM ADVANCED /01493801/ [Concomitant]
  5. TYLENOL /00724201/ [Concomitant]

REACTIONS (1)
  - TOOTH ABSCESS [None]
